FAERS Safety Report 18383553 (Version 4)
Quarter: 2020Q4

REPORT INFORMATION
  Report Type: Report from Study
  Country: HK (occurrence: HK)
  Receive Date: 20201014
  Receipt Date: 20201120
  Transmission Date: 20210114
  Serious: Yes (Other)
  Sender: FDA-Public Use
  Company Number: NVSC2020HK269687

PATIENT
  Age: 62 Year
  Sex: Female
  Weight: 51.5 kg

DRUGS (5)
  1. TNO155 [Suspect]
     Active Substance: TNO-155 MONOSUCCINATE HEMIHYDRATE
     Dosage: 40 MG, CONT
     Route: 048
     Dates: start: 20201006
  2. TNO155 [Suspect]
     Active Substance: TNO-155 MONOSUCCINATE HEMIHYDRATE
     Indication: NEOPLASM
     Dosage: 40 MG, QD
     Route: 048
     Dates: start: 20200929, end: 20200930
  3. NORVASC [Concomitant]
     Active Substance: AMLODIPINE BESYLATE
     Indication: PRODUCT USED FOR UNKNOWN INDICATION
     Dosage: 05 MG
     Route: 065
  4. RIBOCICLIB. [Suspect]
     Active Substance: RIBOCICLIB
     Indication: NEOPLASM
     Dosage: 150 MG, QD
     Route: 048
     Dates: start: 20200929, end: 20200930
  5. RIBOCICLIB. [Suspect]
     Active Substance: RIBOCICLIB
     Dosage: 100 MG, QD
     Route: 048
     Dates: start: 20201012

REACTIONS (1)
  - Hypersensitivity [Recovered/Resolved]

NARRATIVE: CASE EVENT DATE: 20201001
